FAERS Safety Report 22845415 (Version 3)
Quarter: 2024Q3

REPORT INFORMATION
  Report Type: Spontaneous
  Country: US (occurrence: US)
  Receive Date: 20230821
  Receipt Date: 20240904
  Transmission Date: 20241017
  Serious: No
  Sender: KYOWA
  Company Number: US-KYOWAKIRIN-2023BKK013035

PATIENT

DRUGS (4)
  1. CRYSVITA [Suspect]
     Active Substance: BUROSUMAB-TWZA
     Indication: Phosphorus metabolism disorder
     Dosage: 80 MG (4 ML) , 1X/4 WEEKS
     Route: 058
     Dates: start: 2019
  2. CRYSVITA [Suspect]
     Active Substance: BUROSUMAB-TWZA
     Indication: Phosphorus metabolism disorder
     Dosage: 90 MG, 1X/4 WEEKS
     Route: 058
     Dates: start: 202308
  3. PHOSPHORUS [Concomitant]
     Active Substance: PHOSPHORUS
     Indication: Blood phosphorus decreased
     Dosage: UNK
     Route: 065
  4. CINACALCET HYDROCHLORIDE [Concomitant]
     Active Substance: CINACALCET HYDROCHLORIDE
     Indication: Product used for unknown indication
     Dosage: UNK
     Route: 065

REACTIONS (3)
  - Blood phosphorus decreased [Unknown]
  - Product use in unapproved indication [Not Recovered/Not Resolved]
  - Product dose omission issue [Unknown]

NARRATIVE: CASE EVENT DATE: 20190101
